FAERS Safety Report 7659113-3 (Version None)
Quarter: 2011Q3

REPORT INFORMATION
  Report Type: 
  Country: None (occurrence: None)
  Receive Date: 20110805
  Receipt Date: 20110719
  Transmission Date: 20111222
  Serious: Yes (Hospitalization)
  Sender: FDA-Public Use
  Company Number: US-GLAXOSMITHKLINE-A0878759A

PATIENT
  Age: 67 Year
  Sex: Female
  Weight: 81.8 kg

DRUGS (16)
  1. ZETIA [Concomitant]
  2. CELEBREX [Concomitant]
  3. ATIVAN [Concomitant]
  4. COREG CR [Concomitant]
  5. AVANDIA [Suspect]
     Indication: DIABETES MELLITUS
     Dosage: 2MG TWICE PER DAY
     Route: 048
  6. CYMBALTA [Concomitant]
  7. FOSAMAX [Concomitant]
  8. LISINOPRIL [Concomitant]
  9. LIPITOR [Concomitant]
  10. LOPID [Concomitant]
  11. ELIDEL [Concomitant]
  12. MAXZIDE [Concomitant]
  13. PROAIR HFA [Concomitant]
  14. AVANDAMET [Suspect]
     Indication: DIABETES MELLITUS
     Route: 048
     Dates: start: 20091006, end: 20100126
  15. ARIMIDEX [Concomitant]
  16. PREVACID [Concomitant]

REACTIONS (5)
  - MYOCARDIAL INFARCTION [None]
  - CARDIAC FAILURE CONGESTIVE [None]
  - CARDIAC ARREST [None]
  - CORONARY ARTERY DISEASE [None]
  - AORTIC VALVE REPLACEMENT [None]
